FAERS Safety Report 9937403 (Version 1)
Quarter: 2014Q1

REPORT INFORMATION
  Report Type: Spontaneous
  Country: TR (occurrence: TR)
  Receive Date: 20140303
  Receipt Date: 20140303
  Transmission Date: 20141002
  Serious: Yes (Hospitalization, Other)
  Sender: FDA-Public Use
  Company Number: TR-PAR PHARMACEUTICAL, INC-2014SCPR008944

PATIENT
  Sex: 0

DRUGS (2)
  1. CLOMIPHENE CITRATE [Suspect]
     Indication: OVULATION INDUCTION
     Dosage: 100 MG, / DAY
     Route: 065
     Dates: start: 201103
  2. ACETYLSALICYLIC ACID [Concomitant]
     Indication: SCLERODERMA
     Dosage: 100 MG, / DAY
     Route: 065

REACTIONS (2)
  - Scleroderma renal crisis [Recovered/Resolved]
  - Ovarian hyperstimulation syndrome [Recovered/Resolved]
